FAERS Safety Report 12885704 (Version 9)
Quarter: 2019Q3

REPORT INFORMATION
  Report Type: Spontaneous
  Country: US (occurrence: US)
  Receive Date: 20161026
  Receipt Date: 20190902
  Transmission Date: 20191004
  Serious: Yes (Congenital Anomaly, Other)
  Sender: FDA-Public Use
  Company Number: PHEH2016US027449

PATIENT
  Sex: Female

DRUGS (4)
  1. ONDANSETRON TEVA [Suspect]
     Active Substance: ONDANSETRON
     Indication: FOETAL EXPOSURE DURING PREGNANCY
     Dosage: MOTHER^S DOSE: 04 MG, QD
     Route: 064
  2. ZOFRAN [Suspect]
     Active Substance: ONDANSETRON HYDROCHLORIDE
     Indication: FOETAL EXPOSURE DURING PREGNANCY
     Route: 064
  3. ONDANSETRON HYDROCHLORIDE. [Suspect]
     Active Substance: ONDANSETRON HYDROCHLORIDE
     Indication: FOETAL EXPOSURE DURING PREGNANCY
     Route: 064
  4. ZOFRAN [Suspect]
     Active Substance: ONDANSETRON HYDROCHLORIDE
     Indication: FOETAL EXPOSURE DURING PREGNANCY
     Dosage: MOTHER^S DOSE: 04 MG, QD
     Route: 064

REACTIONS (33)
  - Ventricular septal defect [Unknown]
  - Dermatitis diaper [Unknown]
  - Depression [Unknown]
  - Insomnia [Unknown]
  - Arnold-Chiari malformation [Unknown]
  - Left-to-right cardiac shunt [Unknown]
  - Speech disorder [Unknown]
  - Cough [Unknown]
  - Pyrexia [Unknown]
  - Cyanosis [Unknown]
  - Heart disease congenital [Unknown]
  - Diarrhoea [Unknown]
  - Conjunctivitis [Unknown]
  - Upper respiratory tract infection [Unknown]
  - Gastrooesophageal reflux disease [Unknown]
  - Body height below normal [Unknown]
  - Hypoaesthesia [Unknown]
  - Dysmorphism [Unknown]
  - Jaundice neonatal [Unknown]
  - Atrial septal defect [Unknown]
  - Foetal exposure during pregnancy [Unknown]
  - Decreased appetite [Unknown]
  - Dysphagia [Unknown]
  - Abnormal weight gain [Unknown]
  - Nasal congestion [Unknown]
  - Vomiting [Unknown]
  - Otitis media [Unknown]
  - Feeding disorder [Unknown]
  - Weight gain poor [Unknown]
  - Dysaesthesia [Unknown]
  - Nausea [Unknown]
  - Failure to thrive [Unknown]
  - Haematochezia [Unknown]
